FAERS Safety Report 8957858 (Version 4)
Quarter: 2013Q2

REPORT INFORMATION
  Report Type: Spontaneous
  Country: US (occurrence: US)
  Receive Date: 20121211
  Receipt Date: 20130429
  Transmission Date: 20140414
  Serious: Yes (Other)
  Sender: FDA-Public Use
  Company Number: US-BIOGENIDEC-2012BI056743

PATIENT
  Age: 37 Year
  Sex: Female

DRUGS (1)
  1. TYSABRI [Suspect]
     Indication: MULTIPLE SCLEROSIS
     Route: 042
     Dates: start: 20120730

REACTIONS (5)
  - Breast cyst [Not Recovered/Not Resolved]
  - Phyllodes tumour [Not Recovered/Not Resolved]
  - Skull fracture [Recovered/Resolved]
  - Breast neoplasm [Unknown]
  - Fatigue [Not Recovered/Not Resolved]
